FAERS Safety Report 12949523 (Version 1)
Quarter: 2016Q4

REPORT INFORMATION
  Report Type: Spontaneous
  Country: HR (occurrence: HR)
  Receive Date: 20161117
  Receipt Date: 20161117
  Transmission Date: 20170207
  Serious: Yes (Life-Threatening)
  Sender: FDA-Public Use
  Company Number: HR-B.I. PHARMACEUTICALS,INC./RIDGEFIELD-2016-BI-077378

PATIENT
  Age: 82 Year
  Sex: Female

DRUGS (8)
  1. FUROSEMIDE. [Concomitant]
     Active Substance: FUROSEMIDE
     Indication: PRODUCT USED FOR UNKNOWN INDICATION
     Route: 065
  2. CORDARONE [Concomitant]
     Active Substance: AMIODARONE HYDROCHLORIDE
     Indication: PRODUCT USED FOR UNKNOWN INDICATION
     Route: 065
  3. LACIPIL [Concomitant]
     Active Substance: LACIDIPINE
     Indication: PRODUCT USED FOR UNKNOWN INDICATION
     Route: 065
  4. PRADAXA [Suspect]
     Active Substance: DABIGATRAN ETEXILATE MESYLATE
     Indication: ATRIAL FIBRILLATION
  5. BETASERC [Concomitant]
     Active Substance: BETAHISTINE
     Indication: PRODUCT USED FOR UNKNOWN INDICATION
     Route: 065
  6. PRADAXA [Suspect]
     Active Substance: DABIGATRAN ETEXILATE MESYLATE
     Indication: CEREBROVASCULAR ACCIDENT PROPHYLAXIS
     Route: 065
  7. CARVELOL [Concomitant]
     Indication: PRODUCT USED FOR UNKNOWN INDICATION
     Route: 065
  8. VENTOLIN [Concomitant]
     Active Substance: ALBUTEROL SULFATE
     Indication: PRODUCT USED FOR UNKNOWN INDICATION
     Route: 065

REACTIONS (1)
  - Incarcerated hiatus hernia [Unknown]
